FAERS Safety Report 7209285-X (Version None)
Quarter: 2011Q1

REPORT INFORMATION
  Report Type: 
  Country: None (occurrence: None)
  Receive Date: 20110104
  Receipt Date: 20101227
  Transmission Date: 20110831
  Serious: Yes (Death)
  Sender: FDA-Public Use
  Company Number: B0691475A

PATIENT
  Age: 46 Year
  Sex: Male
  Weight: 90 kg

DRUGS (3)
  1. NSAID [Concomitant]
  2. ARIXTRA [Suspect]
     Dosage: 2.5MG PER DAY
     Route: 058
     Dates: start: 20101202, end: 20101206
  3. VOLTAREN [Concomitant]

REACTIONS (1)
  - GASTROINTESTINAL HAEMORRHAGE [None]
